FAERS Safety Report 6355742-8 (Version None)
Quarter: 2009Q3

REPORT INFORMATION
  Report Type: 
  Country: None (occurrence: None)
  Receive Date: 20090915
  Receipt Date: 20070511
  Transmission Date: 20100115
  Serious: Yes (Other)
  Sender: FDA-Public Use
  Company Number: US-ASTRAZENECA-2006UW27651

PATIENT
  Age: 550 Month
  Sex: Male
  Weight: 97.1 kg

DRUGS (10)
  1. SEROQUEL [Suspect]
     Indication: BIPOLAR DISORDER
     Dosage: 75-200 MG
     Route: 048
     Dates: start: 20030101, end: 20060410
  2. SEROQUEL [Suspect]
     Indication: SCHIZOPHRENIA
     Dosage: 75-200 MG
     Route: 048
     Dates: start: 20030101, end: 20060410
  3. SEROQUEL [Suspect]
     Indication: THINKING ABNORMAL
     Dosage: 75-200 MG
     Route: 048
     Dates: start: 20030101, end: 20060410
  4. SEROQUEL [Suspect]
     Dosage: 100 MG - 200 MG
     Route: 048
     Dates: start: 20050609, end: 20060401
  5. SEROQUEL [Suspect]
     Dosage: 100 MG - 200 MG
     Route: 048
     Dates: start: 20050609, end: 20060401
  6. SEROQUEL [Suspect]
     Dosage: 100 MG - 200 MG
     Route: 048
     Dates: start: 20050609, end: 20060401
  7. MIRTAZAPINE [Concomitant]
     Dates: start: 20060210
  8. PAXIL [Concomitant]
  9. TRAZODONE HCL [Concomitant]
  10. CLONAZEPAM [Concomitant]
     Indication: ANXIETY
     Dates: start: 20050214

REACTIONS (8)
  - CHEST PAIN [None]
  - DIABETES MELLITUS [None]
  - DIABETIC KETOACIDOSIS [None]
  - DIABETIC RETINOPATHY [None]
  - GLAUCOMA [None]
  - INJURY [None]
  - TARDIVE DYSKINESIA [None]
  - WEIGHT INCREASED [None]
